FAERS Safety Report 5426089-9 (Version None)
Quarter: 2007Q3

REPORT INFORMATION
  Report Type: 
  Country: None (occurrence: None)
  Receive Date: 20070823
  Receipt Date: 20070823
  Transmission Date: 20080115
  Serious: Yes (Hospitalization)
  Sender: FDA-Public Use
  Company Number: None

PATIENT
  Age: 44 Year
  Sex: Male
  Weight: 80.5 kg

DRUGS (1)
  1. MYCOPHENOLATE MOFETIL [Suspect]
     Dosage: 500 MG BID
     Dates: start: 20010826, end: 20061103

REACTIONS (7)
  - BODY TEMPERATURE INCREASED [None]
  - CHILLS [None]
  - DIARRHOEA [None]
  - ERYTHEMA [None]
  - OEDEMA PERIPHERAL [None]
  - PRODUCTIVE COUGH [None]
  - WHITE BLOOD CELL COUNT ABNORMAL [None]
